FAERS Safety Report 4866253-0 (Version None)
Quarter: 2005Q4

REPORT INFORMATION
  Report Type: 
  Country: None (occurrence: None)
  Receive Date: 20051220
  Receipt Date: 20051207
  Transmission Date: 20060501
  Serious: Yes (Other)
  Sender: FDA-Public Use
  Company Number: 8013462

PATIENT
  Age: 43 Year
  Sex: Female

DRUGS (6)
  1. KEPPRA [Suspect]
     Indication: EPILEPSY
     Dosage: 500 MG2/D PO
     Route: 048
     Dates: start: 20051001
  2. DEPAKINE/00228502/ [Suspect]
     Indication: EPILEPSY
     Dosage: PO
     Route: 048
  3. URBANYL [Suspect]
     Indication: EPILEPSY
     Dosage: PO
     Route: 048
  4. LEVOTHYROXINE SODIUM [Suspect]
     Indication: HYPOPITUITARISM
     Dosage: 175 MCG/D PO
     Route: 048
  5. HYDROCORTISONE [Suspect]
     Indication: HYPOPITUITARISM
     Dosage: 10MG/D PO
     Route: 048
  6. MINIRIN [Suspect]
     Indication: HYPOPITUITARISM
     Dosage: PO
     Route: 048

REACTIONS (9)
  - AFFECTIVE DISORDER [None]
  - AGEUSIA [None]
  - ANOREXIA [None]
  - ANOSMIA [None]
  - ASTHENIA [None]
  - DEPRESSION [None]
  - DIZZINESS [None]
  - NAUSEA [None]
  - SUICIDAL IDEATION [None]
